FAERS Safety Report 8799341 (Version 1)
Quarter: 2012Q4

REPORT INFORMATION
  Report Type: 
  Country: JP (occurrence: JP)
  Receive Date: 20120920
  Receipt Date: 20120920
  Transmission Date: 20130627
  Serious: Yes (Hospitalization, Disabling)
  Sender: FDA-Public Use
  Company Number: JP-009507513-1007USA00622

PATIENT
  Age: 26 Year
  Sex: Male

DRUGS (13)
  1. ISENTRESS [Suspect]
     Indication: HIV INFECTION
     Dosage: 800 mg, qd
     Route: 048
     Dates: start: 20100127
  2. STOCRIN [Suspect]
     Indication: HIV INFECTION
     Dosage: 600 mg, qd
     Route: 048
     Dates: start: 20050921, end: 20051004
  3. STOCRIN [Suspect]
     Dosage: 600 mg, qd
     Route: 048
     Dates: start: 20070207, end: 20070221
  4. RETROVIR [Suspect]
     Indication: HIV INFECTION
     Dosage: 300 mg, qd
     Route: 048
     Dates: start: 19961227, end: 20050921
  5. EPIVIR [Suspect]
     Indication: HIV INFECTION
     Dosage: 150 mg, bid
     Route: 048
     Dates: start: 19970228, end: 20050921
  6. LEXIVA [Suspect]
     Indication: HIV INFECTION
     Dosage: 700 mg, bid
     Route: 048
     Dates: start: 20090128, end: 20090517
  7. EPZICOM [Suspect]
     Indication: HIV INFECTION
     Dosage: 1 DF, qd
     Route: 048
     Dates: start: 20090617, end: 20100127
  8. TRUVADA [Suspect]
     Indication: HIV INFECTION
     Dosage: 1 DF, qd
     Route: 048
     Dates: start: 20070207, end: 20090617
  9. TRUVADA [Suspect]
     Dosage: 1 DF, qd
     Route: 048
     Dates: start: 20100127
  10. INTELENCE [Suspect]
     Indication: HIV INFECTION
     Dosage: 400 mg, qd
     Route: 048
     Dates: start: 20090617, end: 20100127
  11. INVIRASE [Suspect]
     Indication: HIV INFECTION
     Dosage: 600 mg, tid
     Route: 048
     Dates: start: 19971003, end: 20050921
  12. NORVIR [Suspect]
     Dosage: UNK
  13. KALETRA [Suspect]
     Dosage: 1DF=4Tab

REACTIONS (4)
  - Vitamin B12 deficiency [Recovering/Resolving]
  - Spinal cord disorder [Recovering/Resolving]
  - Spastic paraplegia [Recovering/Resolving]
  - Subacute combined cord degeneration [Recovering/Resolving]
